FAERS Safety Report 6013252-1 (Version None)
Quarter: 2008Q4

REPORT INFORMATION
  Report Type: 
  Country: None (occurrence: None)
  Receive Date: 20081218
  Receipt Date: 20081218
  Transmission Date: 20090506
  Serious: No
  Sender: FDA-Public Use
  Company Number: None

PATIENT
  Age: 55 Year
  Sex: Female
  Weight: 61.2356 kg

DRUGS (2)
  1. TAXOL [Suspect]
     Indication: BREAST CANCER STAGE I
     Dosage: EVERY OTHER WEEKX4 INTRACARDIAC
     Route: 016
     Dates: start: 20080514, end: 20080611
  2. TAXOL [Suspect]
     Indication: BREAST CANCER STAGE I
     Dosage: EVERY OTHER WEEKX4 INTRACARDIAC
     Route: 016
     Dates: start: 20080528, end: 20080625

REACTIONS (5)
  - HYPOAESTHESIA [None]
  - PAIN IN EXTREMITY [None]
  - PARAESTHESIA [None]
  - QUALITY OF LIFE DECREASED [None]
  - RHEUMATOID ARTHRITIS [None]
